FAERS Safety Report 6616204-3 (Version None)
Quarter: 2010Q1

REPORT INFORMATION
  Report Type: 
  Country: None (occurrence: None)
  Receive Date: 20100305
  Receipt Date: 20100301
  Transmission Date: 20100710
  Serious: Yes (Death)
  Sender: FDA-Public Use
  Company Number: PHEH2010US02710

PATIENT
  Sex: Female

DRUGS (4)
  1. GLEEVEC [Suspect]
     Indication: CHRONIC MYELOID LEUKAEMIA
     Dosage: 400 MG, QD
     Route: 048
     Dates: start: 20091223
  2. HYDROCODONE [Suspect]
     Indication: PAIN
     Dosage: 30 MG QAM, 20 MG QHS
     Dates: start: 20091216
  3. XANAX [Suspect]
     Indication: ANXIETY
     Dosage: 0.25 MG, TID
     Route: 048
     Dates: start: 20091120, end: 20091201
  4. METOPROLOL [Suspect]
     Indication: HYPERTENSION
     Dosage: 50 MG, BID
     Route: 048
     Dates: start: 20091120, end: 20091201

REACTIONS (4)
  - FATIGUE [None]
  - LUNG CANCER METASTATIC [None]
  - MALIGNANT NEOPLASM PROGRESSION [None]
  - METASTASES TO CENTRAL NERVOUS SYSTEM [None]
